FAERS Safety Report 8906074 (Version 3)
Quarter: 2013Q2

REPORT INFORMATION
  Report Type: Spontaneous
  Country: US (occurrence: US)
  Receive Date: 20121112
  Receipt Date: 20130429
  Transmission Date: 20140414
  Serious: No
  Sender: FDA-Public Use
  Company Number: US-PFIZER INC-2012279860

PATIENT
  Age: 66 Year
  Sex: Female

DRUGS (4)
  1. METAXALONE [Suspect]
     Indication: PAIN
     Dosage: AMBER VIAL, 800 MG, 1-2  TABLETS DAILY
     Route: 048
  2. METAXALONE [Suspect]
     Indication: MUSCLE SPASMS
     Dosage: WHITE VIAL, 800 MG, 1-2  TABLETS DAILY
  3. DONEPEZIL [Concomitant]
     Dosage: 10 MG, 1X/DAY
  4. LEXAPRO [Concomitant]
     Indication: ELEVATED MOOD
     Dosage: 10 MG, 1X/DAY

REACTIONS (2)
  - Drug ineffective [Unknown]
  - Pain [Recovered/Resolved]
